FAERS Safety Report 12780355 (Version 1)
Quarter: 2016Q3

REPORT INFORMATION
  Report Type: Report from Study
  Country: FR (occurrence: FR)
  Receive Date: 20160926
  Receipt Date: 20160926
  Transmission Date: 20161109
  Serious: Yes (Hospitalization, Other)
  Sender: FDA-Public Use
  Company Number: PHHO2016FR013833

PATIENT
  Age: 70 Year
  Sex: Male

DRUGS (4)
  1. NEORAL [Suspect]
     Active Substance: CYCLOSPORINE
     Indication: RENAL TRANSPLANT
     Route: 065
  2. MYFORTIC [Suspect]
     Active Substance: MYCOPHENOLATE SODIUM
     Dosage: 720 MG, BID
     Route: 065
     Dates: start: 20160601
  3. MYFORTIC [Suspect]
     Active Substance: MYCOPHENOLATE SODIUM
     Indication: RENAL TRANSPLANT
     Dosage: 1080 MG, BID
     Route: 065
     Dates: start: 20160417
  4. NO TREATMENT RECEIVED [Suspect]
     Active Substance: UNSPECIFIED INGREDIENT
     Indication: RENAL TRANSPLANT
     Dosage: NO TREATMENT
     Route: 065

REACTIONS (8)
  - Cytomegalovirus infection [Recovered/Resolved]
  - Acute pulmonary oedema [Recovered/Resolved]
  - Staphylococcal sepsis [Recovered/Resolved]
  - Subclavian vein stenosis [Recovered/Resolved with Sequelae]
  - Thrombocytopenia [Recovered/Resolved]
  - Pancytopenia [Unknown]
  - Klebsiella sepsis [Recovered/Resolved]
  - Enterococcal sepsis [Recovered/Resolved]

NARRATIVE: CASE EVENT DATE: 20160421
